FAERS Safety Report 4900133-7 (Version None)
Quarter: 2006Q1

REPORT INFORMATION
  Report Type: 
  Country: None (occurrence: None)
  Receive Date: 20060201
  Receipt Date: 20060119
  Transmission Date: 20060701
  Serious: Yes (Death, Hospitalization, Other)
  Sender: FDA-Public Use
  Company Number: 2006010259

PATIENT
  Age: 58 Year
  Sex: Male

DRUGS (3)
  1. LIPITOR [Suspect]
     Indication: BLOOD CHOLESTEROL INCREASED
     Dosage: 20 MG (20 MG, 1 IN 1 D)
     Dates: start: 20040801, end: 20051225
  2. PLAVIX [Concomitant]
  3. LISINOPRIL [Concomitant]

REACTIONS (14)
  - ABASIA [None]
  - ANGINA PECTORIS [None]
  - ARTHRALGIA [None]
  - ASTHENIA [None]
  - BACK PAIN [None]
  - BONE PAIN [None]
  - BURNING SENSATION [None]
  - CARDIAC FAILURE [None]
  - FALL [None]
  - FATIGUE [None]
  - HYPERTENSION [None]
  - MYALGIA [None]
  - NERVOUS SYSTEM DISORDER [None]
  - ROAD TRAFFIC ACCIDENT [None]
